FAERS Safety Report 23137665 (Version 3)
Quarter: 2023Q4

REPORT INFORMATION
  Report Type: Spontaneous
  Country: CA (occurrence: CA)
  Receive Date: 20231102
  Receipt Date: 20231204
  Transmission Date: 20240109
  Serious: Yes (Other)
  Sender: FDA-Public Use
  Company Number: CA-CELLTRION INC.-2022CA006737

PATIENT

DRUGS (12)
  1. INFLECTRA [Suspect]
     Active Substance: INFLIXIMAB-DYYB
     Indication: Colitis ulcerative
     Dosage: 500 MG, EVERY 0, 2, 6, THEN EVERY 8 WEEKS (WEEK 0 DOSE AT HOSPITAL)
     Route: 042
     Dates: start: 20220401
  2. INFLECTRA [Suspect]
     Active Substance: INFLIXIMAB-DYYB
     Dosage: 500 MG WEEK 2, 6, THEN EVERY 4 WEEKS
     Route: 042
     Dates: start: 20220418
  3. INFLECTRA [Suspect]
     Active Substance: INFLIXIMAB-DYYB
     Dosage: 500 MG WEEK 2, 6, THEN EVERY 4 WEEKS
     Route: 042
     Dates: start: 20220504
  4. INFLECTRA [Suspect]
     Active Substance: INFLIXIMAB-DYYB
     Dosage: 500 MG WEEK 2, 6, THEN EVERY 4 WEEKS
     Route: 042
     Dates: start: 20220530
  5. INFLECTRA [Suspect]
     Active Substance: INFLIXIMAB-DYYB
     Dosage: 500 MG WEEK 2, 6, THEN EVERY 4 WEEKS
     Route: 042
     Dates: start: 20220629
  6. INFLECTRA [Suspect]
     Active Substance: INFLIXIMAB-DYYB
     Dosage: 500 MG WEEK 2, 6, THEN EVERY 4 WEEKS
     Route: 042
     Dates: start: 20220824
  7. INFLECTRA [Suspect]
     Active Substance: INFLIXIMAB-DYYB
     Dosage: 500 MG WEEK 2, 6, THEN EVERY 4 WEEKS
     Route: 042
     Dates: start: 20221020
  8. INFLECTRA [Suspect]
     Active Substance: INFLIXIMAB-DYYB
     Dosage: 500 MG WEEK 2, 6, THEN EVERY 4 WEEKS
     Route: 042
     Dates: start: 20221118
  9. INFLECTRA [Suspect]
     Active Substance: INFLIXIMAB-DYYB
     Dosage: 500 MG WEEK 2, 6, THEN EVERY 4 WEEKS
     Route: 042
     Dates: start: 20230929
  10. INFLECTRA [Suspect]
     Active Substance: INFLIXIMAB-DYYB
     Dosage: 500 MG WEEK 2, 6, THEN EVERY 4 WEEKS
     Route: 042
     Dates: start: 20231025
  11. INFLECTRA [Suspect]
     Active Substance: INFLIXIMAB-DYYB
     Dosage: 500MG, WEEK 2, 6, THEN EVERY 4 WEEKS  ( AFTER 4 WEEKS AND 2 DAYS)
     Route: 042
     Dates: start: 20231124
  12. PREDNISONE [Concomitant]
     Active Substance: PREDNISONE
     Dosage: UNK

REACTIONS (9)
  - Haemorrhage [Unknown]
  - Blood pressure diastolic increased [Unknown]
  - Condition aggravated [Recovered/Resolved]
  - Abdominal pain upper [Unknown]
  - Illness [Unknown]
  - Off label use [Unknown]
  - Off label use [Unknown]
  - Intentional product use issue [Unknown]
  - Inappropriate schedule of product administration [Unknown]

NARRATIVE: CASE EVENT DATE: 20220418
